FAERS Safety Report 7153088-1 (Version None)
Quarter: 2010Q4

REPORT INFORMATION
  Report Type: 
  Country: None (occurrence: None)
  Receive Date: 20101213
  Receipt Date: 20101202
  Transmission Date: 20110411
  Serious: Yes (Hospitalization, Other)
  Sender: FDA-Public Use
  Company Number: KP-ALEXION-A201001483

PATIENT
  Sex: Female

DRUGS (5)
  1. SOLIRIS [Suspect]
     Indication: PAROXYSMAL NOCTURNAL HAEMOGLOBINURIA
     Dosage: 600 MG, QW
     Route: 042
     Dates: start: 20091223, end: 20100119
  2. SOLIRIS [Suspect]
     Dosage: 900 MG, Q2W
     Route: 042
     Dates: start: 20100120, end: 20101112
  3. FOLIC ACID [Concomitant]
     Dosage: 2-4 MG
     Route: 048
     Dates: start: 20060119, end: 20101126
  4. SILYMARIN [Concomitant]
     Dosage: 2C-3C
     Route: 048
     Dates: start: 20070516, end: 20101116
  5. FEXOFENADINE HCL [Concomitant]
     Dosage: 120 MG, UNK
     Route: 048
     Dates: start: 20100917, end: 20101116

REACTIONS (7)
  - CEREBRAL HAEMORRHAGE [None]
  - COMA [None]
  - HAEMOLYSIS [None]
  - MENINGOCOCCAL INFECTION [None]
  - PULMONARY HAEMORRHAGE [None]
  - RENAL FAILURE [None]
  - THROMBOCYTOPENIA [None]
